FAERS Safety Report 6159543-5 (Version None)
Quarter: 2009Q2

REPORT INFORMATION
  Report Type: 
  Country: None (occurrence: None)
  Receive Date: 20090420
  Receipt Date: 20090414
  Transmission Date: 20091009
  Serious: Yes (Other)
  Sender: FDA-Public Use
  Company Number: CA-JNJFOC-20090403603

PATIENT
  Sex: Female

DRUGS (4)
  1. TMC125 [Suspect]
     Indication: HIV INFECTION
     Route: 048
  2. LEXIVA [Suspect]
     Indication: HIV INFECTION
  3. EPZICOM [Suspect]
     Indication: HIV INFECTION
  4. RESCRIPTOR [Suspect]
     Indication: HIV INFECTION

REACTIONS (9)
  - DEPRESSION [None]
  - DIARRHOEA [None]
  - FATIGUE [None]
  - HALLUCINATION [None]
  - HEADACHE [None]
  - INSOMNIA [None]
  - NAUSEA [None]
  - NIGHTMARE [None]
  - RASH [None]
